FAERS Safety Report 23976513 (Version 1)
Quarter: 2024Q2

REPORT INFORMATION
  Report Type: Report from Study
  Country: DE (occurrence: DE)
  Receive Date: 20240614
  Receipt Date: 20240614
  Transmission Date: 20240715
  Serious: Yes (Hospitalization, Other)
  Sender: FDA-Public Use
  Company Number: DE-SUN PHARMACEUTICAL INDUSTRIES LTD-2024R1-451004

PATIENT
  Age: 21 Month
  Sex: Female

DRUGS (3)
  1. EMPAGLIFLOZIN [Suspect]
     Active Substance: EMPAGLIFLOZIN
     Indication: Neutropenia
     Dosage: 0.25 MILLIGRAM/KILOGRAM, QD
     Route: 065
  2. EMPAGLIFLOZIN [Suspect]
     Active Substance: EMPAGLIFLOZIN
     Indication: Neutrophil function disorder
     Dosage: 0.5 MILLIGRAM/KILOGRAM, QD
     Route: 065
  3. EMPAGLIFLOZIN [Suspect]
     Active Substance: EMPAGLIFLOZIN
     Indication: Glycogen storage disease type I

REACTIONS (4)
  - Genital candidiasis [Unknown]
  - Hypoglycaemia [Unknown]
  - Therapeutic response decreased [Unknown]
  - Off label use [Unknown]
